FAERS Safety Report 8531643-1 (Version None)
Quarter: 2012Q3

REPORT INFORMATION
  Report Type: 
  Country: None (occurrence: None)
  Receive Date: 20120723
  Receipt Date: 20120713
  Transmission Date: 20120928
  Serious: Yes (Other)
  Sender: FDA-Public Use
  Company Number: US-ASTRAZENECA-2012SE49008

PATIENT
  Sex: Female

DRUGS (1)
  1. ENTOCORT EC [Suspect]
     Indication: DIARRHOEA
     Route: 048
     Dates: start: 20110901

REACTIONS (5)
  - HEADACHE [None]
  - DIZZINESS [None]
  - OFF LABEL USE [None]
  - METASTASES TO PERITONEUM [None]
  - NAUSEA [None]
